FAERS Safety Report 8987844 (Version 1)
Quarter: 2012Q4

REPORT INFORMATION
  Report Type: 
  Country: US (occurrence: US)
  Receive Date: 20121227
  Receipt Date: 20121227
  Transmission Date: 20130627
  Serious: Yes (Death)
  Sender: FDA-Public Use
  Company Number: US-GLAXOSMITHKLINE-A1006220A

PATIENT
  Age: 61 Year
  Sex: Male

DRUGS (10)
  1. ARIXTRA [Suspect]
     Indication: DEEP VEIN THROMBOSIS
     Dosage: 7.5MG Twice per day
     Route: 058
     Dates: start: 201211, end: 20121208
  2. PREVACID [Concomitant]
  3. ZOFRAN [Concomitant]
  4. MORPHINE [Concomitant]
  5. ATIVAN [Concomitant]
  6. SUCRALFATE [Concomitant]
  7. COMPAZINE [Concomitant]
  8. MAGNESIUM OXIDE [Concomitant]
  9. FENTANYL PATCH [Concomitant]
  10. LACTULOSE [Concomitant]

REACTIONS (2)
  - Oesophageal cancer metastatic [Fatal]
  - Off label use [Unknown]
